FAERS Safety Report 17219688 (Version 1)
Quarter: 2019Q4

REPORT INFORMATION
  Report Type: Spontaneous
  Country: RO (occurrence: RO)
  Receive Date: 20191231
  Receipt Date: 20191231
  Transmission Date: 20200122
  Serious: Yes (Other)
  Sender: FDA-Public Use
  Company Number: RO-MYLANLABS-2019M1131128

PATIENT
  Age: 27 Year
  Sex: Male

DRUGS (2)
  1. AMISULPRIDE [Suspect]
     Active Substance: AMISULPRIDE
     Indication: SCHIZOPHRENIA
  2. OLANZAPINE. [Suspect]
     Active Substance: OLANZAPINE
     Indication: SCHIZOPHRENIA
     Dosage: UNK

REACTIONS (5)
  - Weight increased [Unknown]
  - Binge eating [Unknown]
  - Somnolence [Unknown]
  - Dystonia [Unknown]
  - Akathisia [Unknown]
